FAERS Safety Report 25623041 (Version 1)
Quarter: 2025Q3

REPORT INFORMATION
  Report Type: Spontaneous
  Country: US (occurrence: US)
  Receive Date: 20250730
  Receipt Date: 20250730
  Transmission Date: 20251020
  Serious: No
  Sender: GALPHARM INTERNATIONAL
  Company Number: US-PERRIGO-25US006300

PATIENT
  Sex: Male

DRUGS (3)
  1. LORATADINE [Suspect]
     Active Substance: LORATADINE
     Indication: Product used for unknown indication
     Route: 048
     Dates: start: 20250513, end: 20250513
  2. LORATADINE [Suspect]
     Active Substance: LORATADINE
     Route: 048
     Dates: start: 20250513, end: 20250513
  3. LORATADINE [Suspect]
     Active Substance: LORATADINE
     Route: 048
     Dates: start: 20250513, end: 20250513

REACTIONS (2)
  - Overdose [Recovered/Resolved]
  - Inappropriate schedule of product administration [Recovered/Resolved]

NARRATIVE: CASE EVENT DATE: 20250513
